FAERS Safety Report 26109763 (Version 1)
Quarter: 2025Q4

REPORT INFORMATION
  Report Type: Spontaneous
  Country: EU (occurrence: EU)
  Receive Date: 20251201
  Receipt Date: 20251201
  Transmission Date: 20260118
  Serious: Yes (Hospitalization)
  Sender: MYLAN
  Company Number: EU-CHEPLA-2025012859

PATIENT
  Age: 54 Year
  Sex: Female

DRUGS (36)
  1. AMLODIPINE [Suspect]
     Active Substance: AMLODIPINE BESYLATE
     Indication: Hypertension
     Dosage: 10 MILLIGRAM, QD (DAILY)
  2. AMLODIPINE [Suspect]
     Active Substance: AMLODIPINE BESYLATE
     Dosage: 10 MILLIGRAM, QD (DAILY)
     Route: 065
  3. AMLODIPINE [Suspect]
     Active Substance: AMLODIPINE BESYLATE
     Dosage: 10 MILLIGRAM, QD (DAILY)
     Route: 065
  4. AMLODIPINE [Suspect]
     Active Substance: AMLODIPINE BESYLATE
     Dosage: 10 MILLIGRAM, QD (DAILY)
  5. DOXAZOSIN [Suspect]
     Active Substance: DOXAZOSIN MESYLATE
     Indication: Hypertension
     Dosage: 8 MILLIGRAM, BID (TWICE A DAY)
  6. DOXAZOSIN [Suspect]
     Active Substance: DOXAZOSIN MESYLATE
     Dosage: 8 MILLIGRAM, BID (TWICE A DAY)
  7. DOXAZOSIN [Suspect]
     Active Substance: DOXAZOSIN MESYLATE
     Dosage: 8 MILLIGRAM, BID (TWICE A DAY)
     Route: 065
  8. DOXAZOSIN [Suspect]
     Active Substance: DOXAZOSIN MESYLATE
     Dosage: 8 MILLIGRAM, BID (TWICE A DAY)
     Route: 065
  9. DOXAZOSIN [Suspect]
     Active Substance: DOXAZOSIN MESYLATE
     Dosage: 4 MILLIGRAM, QD (DECREASING DOSE TO 4 MG 2X1)
  10. DOXAZOSIN [Suspect]
     Active Substance: DOXAZOSIN MESYLATE
     Dosage: 4 MILLIGRAM, QD (DECREASING DOSE TO 4 MG 2X1)
  11. DOXAZOSIN [Suspect]
     Active Substance: DOXAZOSIN MESYLATE
     Dosage: 4 MILLIGRAM, QD (DECREASING DOSE TO 4 MG 2X1)
     Route: 065
  12. DOXAZOSIN [Suspect]
     Active Substance: DOXAZOSIN MESYLATE
     Dosage: 4 MILLIGRAM, QD (DECREASING DOSE TO 4 MG 2X1)
     Route: 065
  13. URAPIDIL [Suspect]
     Active Substance: URAPIDIL
     Indication: Hypertension
     Dosage: 10 MG TO 25 MG PER HOUR
  14. URAPIDIL [Suspect]
     Active Substance: URAPIDIL
     Dosage: 10 MG TO 25 MG PER HOUR
  15. URAPIDIL [Suspect]
     Active Substance: URAPIDIL
     Dosage: 10 MG TO 25 MG PER HOUR
     Route: 042
  16. URAPIDIL [Suspect]
     Active Substance: URAPIDIL
     Dosage: 10 MG TO 25 MG PER HOUR
     Route: 042
  17. URAPIDIL [Suspect]
     Active Substance: URAPIDIL
     Dosage: USED AGAIN FOR 48 HOURS
  18. URAPIDIL [Suspect]
     Active Substance: URAPIDIL
     Dosage: USED AGAIN FOR 48 HOURS
  19. URAPIDIL [Suspect]
     Active Substance: URAPIDIL
     Dosage: USED AGAIN FOR 48 HOURS
     Route: 042
  20. URAPIDIL [Suspect]
     Active Substance: URAPIDIL
     Dosage: USED AGAIN FOR 48 HOURS
     Route: 042
  21. METHYLDOPA [Suspect]
     Active Substance: METHYLDOPA
     Indication: Hypertension
     Dosage: 250 MILLIGRAM, TID (3 ? 250 MG PER DAY)
  22. METHYLDOPA [Suspect]
     Active Substance: METHYLDOPA
     Dosage: 250 MILLIGRAM, TID (3 ? 250 MG PER DAY)
     Route: 065
  23. METHYLDOPA [Suspect]
     Active Substance: METHYLDOPA
     Dosage: 250 MILLIGRAM, TID (3 ? 250 MG PER DAY)
     Route: 065
  24. METHYLDOPA [Suspect]
     Active Substance: METHYLDOPA
     Dosage: 250 MILLIGRAM, TID (3 ? 250 MG PER DAY)
  25. NEBIVOLOL [Suspect]
     Active Substance: NEBIVOLOL
     Indication: Hypertension
     Dosage: 10 MILLIGRAM, QD (DAILY)
  26. NEBIVOLOL [Suspect]
     Active Substance: NEBIVOLOL
     Dosage: 10 MILLIGRAM, QD (DAILY)
     Route: 065
  27. NEBIVOLOL [Suspect]
     Active Substance: NEBIVOLOL
     Dosage: 10 MILLIGRAM, QD (DAILY)
     Route: 065
  28. NEBIVOLOL [Suspect]
     Active Substance: NEBIVOLOL
     Dosage: 10 MILLIGRAM, QD (DAILY)
  29. TORSEMIDE [Suspect]
     Active Substance: TORSEMIDE
     Indication: Hypertension
     Dosage: UNK
  30. TORSEMIDE [Suspect]
     Active Substance: TORSEMIDE
     Dosage: UNK
  31. TORSEMIDE [Suspect]
     Active Substance: TORSEMIDE
     Dosage: UNK
     Route: 065
  32. TORSEMIDE [Suspect]
     Active Substance: TORSEMIDE
     Dosage: UNK
     Route: 065
  33. TORSEMIDE [Suspect]
     Active Substance: TORSEMIDE
     Dosage: 20 MILLIGRAM, QD (INCREASED UP TO 20 MG DAILY)
  34. TORSEMIDE [Suspect]
     Active Substance: TORSEMIDE
     Dosage: 20 MILLIGRAM, QD (INCREASED UP TO 20 MG DAILY)
  35. TORSEMIDE [Suspect]
     Active Substance: TORSEMIDE
     Dosage: 20 MILLIGRAM, QD (INCREASED UP TO 20 MG DAILY)
     Route: 065
  36. TORSEMIDE [Suspect]
     Active Substance: TORSEMIDE
     Dosage: 20 MILLIGRAM, QD (INCREASED UP TO 20 MG DAILY)
     Route: 065

REACTIONS (15)
  - Vascular stent thrombosis [Unknown]
  - Haematochezia [Recovering/Resolving]
  - Skin lesion [Recovering/Resolving]
  - Leukocytosis [Recovering/Resolving]
  - Haemoglobin decreased [Recovering/Resolving]
  - Inflammatory marker increased [Recovering/Resolving]
  - End stage renal disease [Recovering/Resolving]
  - Leukocyturia [Recovering/Resolving]
  - Dieulafoy^s vascular malformation [Recovering/Resolving]
  - Chronic gastritis [Recovering/Resolving]
  - Escherichia infection [Recovering/Resolving]
  - Abdominal pain [Recovering/Resolving]
  - Nausea [Recovering/Resolving]
  - Vomiting [Recovering/Resolving]
  - Pancreatitis acute [Recovering/Resolving]
